FAERS Safety Report 7024855-X (Version None)
Quarter: 2010Q4

REPORT INFORMATION
  Report Type: 
  Country: None (occurrence: None)
  Receive Date: 20101001
  Receipt Date: 20100922
  Transmission Date: 20110411
  Serious: Yes (Other)
  Sender: FDA-Public Use
  Company Number: CO-AMGEN-QUU442089

PATIENT
  Sex: Female

DRUGS (7)
  1. ENBREL [Suspect]
     Indication: RHEUMATOID ARTHRITIS
     Route: 058
     Dates: start: 20091101
  2. GABAPENTIN [Suspect]
     Indication: PAIN
  3. METHOTREXATE [Suspect]
     Indication: RHEUMATOID ARTHRITIS
     Route: 048
     Dates: start: 20070101
  4. ACETAMINOPHEN [Concomitant]
     Indication: PAIN
  5. METHOCARBAMOL [Concomitant]
     Indication: PAIN
  6. HYDROMORPHONE HCL [Concomitant]
     Indication: PAIN
     Dosage: UNKNOWN
  7. OMEPRAZOLE [Concomitant]
     Indication: GASTRIC ULCER
     Dosage: UNKNOWN

REACTIONS (3)
  - DRUG INEFFECTIVE [None]
  - GAIT DISTURBANCE [None]
  - JOINT DESTRUCTION [None]
